FAERS Safety Report 6669626-9 (Version None)
Quarter: 2010Q2

REPORT INFORMATION
  Report Type: 
  Country: None (occurrence: None)
  Receive Date: 20100406
  Receipt Date: 20100325
  Transmission Date: 20101027
  Serious: Yes (Other)
  Sender: FDA-Public Use
  Company Number: JP-PFIZER INC-2010034983

PATIENT
  Age: 87 Year
  Sex: Male

DRUGS (3)
  1. XALATAN [Suspect]
     Indication: GLAUCOMA
     Dosage: ONE DROP, 1X/DAY
     Route: 047
     Dates: start: 20100112, end: 20100215
  2. HYPADIL [Concomitant]
     Indication: GLAUCOMA
     Dosage: UNK
     Route: 047
     Dates: start: 20090805
  3. CATALIN [Concomitant]
     Indication: CATARACT
     Dosage: UNK
     Route: 047
     Dates: start: 20091110

REACTIONS (1)
  - PUNCTATE KERATITIS [None]
